FAERS Safety Report 11899036 (Version 4)
Quarter: 2016Q4

REPORT INFORMATION
  Report Type: Spontaneous
  Country: US (occurrence: US)
  Receive Date: 20160108
  Receipt Date: 20161102
  Transmission Date: 20170206
  Serious: No
  Sender: FDA-Public Use
  Company Number: US-PFIZER INC-2015462631

PATIENT
  Age: 65 Year
  Sex: Male

DRUGS (24)
  1. PERI-COLACE [Concomitant]
     Active Substance: CASANTHRANOL\DOCUSATE SODIUM
     Dosage: UNK
  2. NYSTATIN. [Concomitant]
     Active Substance: NYSTATIN
     Dosage: UNK UNK, 3X/DAY
     Route: 061
  3. VITAMIN D3 [Concomitant]
     Active Substance: CHOLECALCIFEROL
     Dosage: 1 DF, 1X/DAY
     Route: 048
  4. DIPHENOXYLATE/ATROPINE [Concomitant]
     Active Substance: ATROPINE\DIPHENOXYLATE
     Indication: DIARRHOEA
     Dosage: AS NEEDED
     Route: 048
  5. VITAMIN B6 [Concomitant]
     Active Substance: PYRIDOXINE HYDROCHLORIDE
     Dosage: 500 MG, 1X/DAY (IN THE MORNING)
     Route: 048
  6. IBUPROFEN. [Concomitant]
     Active Substance: IBUPROFEN
     Dosage: 400 MG, AS NEEDED (2 TABLETS EVERY 6 HOURS )
     Route: 048
  7. ZANTAC [Concomitant]
     Active Substance: RANITIDINE HYDROCHLORIDE
     Dosage: 150 MG, 2X/DAY (EVERY TWELVE HOURS)
     Route: 048
  8. SUTENT [Suspect]
     Active Substance: SUNITINIB MALATE
     Dosage: 50 MG, 1XDAY, CYCLIC (FOR 14 DAYS, THEN 7 DAYS OFF)
  9. FOSINOPRIL [Concomitant]
     Active Substance: FOSINOPRIL
     Dosage: 20 MG, 1X/DAY (1/2 TABLET)
     Route: 048
     Dates: start: 1995
  10. VIAGRA [Concomitant]
     Active Substance: SILDENAFIL CITRATE
     Dosage: 50 MG (1/2 TABLET AS DIRECTED)
  11. VENTOLIN HFA [Concomitant]
     Active Substance: ALBUTEROL SULFATE
     Dosage: 1 OR 2 PUFFS EVERY 4 TO 6 HOURS AS NEEDED
     Route: 055
  12. METOPROLOL TARTRATE. [Concomitant]
     Active Substance: METOPROLOL TARTRATE
     Dosage: 37.5 MG, 2X/DAY
     Route: 048
  13. IMODIUM [Concomitant]
     Active Substance: LOPERAMIDE HYDROCHLORIDE
     Dosage: UNK, AS NEEDED
     Dates: start: 2014
  14. ACETAMINOPHEN. [Concomitant]
     Active Substance: ACETAMINOPHEN
     Dosage: 650 MG, AS NEEDED (2 TABLETS, EVERY 6 HOURS)
     Route: 048
  15. SUTENT [Suspect]
     Active Substance: SUNITINIB MALATE
     Indication: METASTATIC RENAL CELL CARCINOMA
     Dosage: 50 MG, 1XDAY, CYCLIC (28 DAYS ON/14 DAYS OFF)
     Route: 048
     Dates: start: 201408
  16. OMEPRAZOLE. [Concomitant]
     Active Substance: OMEPRAZOLE
     Indication: GASTROOESOPHAGEAL REFLUX DISEASE
     Dosage: 20 MG, AS NEEDED
     Route: 048
  17. AMLODIPINE [Concomitant]
     Active Substance: AMLODIPINE BESYLATE
     Dosage: 5 MG, 1X/DAY
     Route: 048
  18. SYNTHROID [Concomitant]
     Active Substance: LEVOTHYROXINE SODIUM
     Dosage: 125 UG, 1X/DAY
  19. MAG-OX [Concomitant]
     Active Substance: MAGNESIUM OXIDE
     Dosage: 1 DF, 1X/DAY
     Route: 048
  20. ASPIRIN. [Concomitant]
     Active Substance: ASPIRIN
     Dosage: 325 MG, 1X/DAY
     Dates: start: 1995
  21. BISCODYL [Concomitant]
     Active Substance: BISACODYL
     Dosage: UNK
  22. PRILOSEC [Concomitant]
     Active Substance: OMEPRAZOLE MAGNESIUM
     Dosage: UNK, AS NEEDED
     Dates: start: 2015
  23. PROCTOSOL HC [Concomitant]
     Dosage: 2.5 %, 4X/DAY
     Route: 054
  24. NIASPAN [Concomitant]
     Active Substance: NIACIN
     Dosage: 1500 MG, DAILY (AT BEDTIME)

REACTIONS (7)
  - Palmar-plantar erythrodysaesthesia syndrome [Not Recovered/Not Resolved]
  - Sensitivity of teeth [Recovered/Resolved]
  - Pain in jaw [Recovered/Resolved]
  - Diarrhoea [Unknown]
  - Mastication disorder [Recovered/Resolved]
  - Oral pain [Not Recovered/Not Resolved]
  - Toothache [Recovered/Resolved]

NARRATIVE: CASE EVENT DATE: 201411
